FAERS Safety Report 12216442 (Version 1)
Quarter: 2016Q1

REPORT INFORMATION
  Report Type: Spontaneous
  Country: US (occurrence: None)
  Receive Date: 20160328
  Receipt Date: 20160328
  Transmission Date: 20160526
  Serious: Yes (Hospitalization)
  Sender: FDA-Public Use
  Company Number: None

PATIENT
  Age: 84 Year
  Sex: Female
  Weight: 46.6 kg

DRUGS (1)
  1. XELODA [Suspect]
     Active Substance: CAPECITABINE
     Dates: end: 20151230

REACTIONS (3)
  - Haemorrhagic anaemia [None]
  - Gastric ulcer [None]
  - Gastrointestinal stoma output increased [None]

NARRATIVE: CASE EVENT DATE: 20160308
